FAERS Safety Report 8208452-6 (Version None)
Quarter: 2012Q1

REPORT INFORMATION
  Report Type: 
  Country: None (occurrence: None)
  Receive Date: 20120314
  Receipt Date: 20120312
  Transmission Date: 20120608
  Serious: Yes (Hospitalization, Other)
  Sender: FDA-Public Use
  Company Number: US-PFIZER INC-2012064901

PATIENT
  Sex: Female
  Weight: 45.351 kg

DRUGS (1)
  1. DILANTIN-125 [Suspect]
     Indication: CONVULSION
     Dosage: 100 MG, 2X/DAY
     Dates: start: 19720101

REACTIONS (3)
  - FRACTURE [None]
  - FALL [None]
  - CONVULSION [None]
